FAERS Safety Report 6132945-9 (Version None)
Quarter: 2009Q1

REPORT INFORMATION
  Report Type: 
  Country: None (occurrence: None)
  Receive Date: 20090326
  Receipt Date: 20090317
  Transmission Date: 20090719
  Serious: Yes (Hospitalization)
  Sender: FDA-Public Use
  Company Number: PHHY2009MX04327

PATIENT
  Sex: Female

DRUGS (2)
  1. STALEVO 100 [Suspect]
     Indication: PARKINSON'S DISEASE
     Dosage: 4 TABS (200  E/100 L/25 C MG)/DAY
     Dates: start: 20060201, end: 20080914
  2. STALEVO 100 [Suspect]
     Dosage: 5 TABS (200  E/100 L/25 C MG)/DAY
     Dates: start: 20081010

REACTIONS (6)
  - ABASIA [None]
  - DETOXIFICATION [None]
  - DYSKINESIA [None]
  - FATIGUE [None]
  - INSOMNIA [None]
  - MOOD ALTERED [None]
